APPROVED DRUG PRODUCT: CEFTAZIDIME
Active Ingredient: CEFTAZIDIME
Strength: 6GM/VIAL
Dosage Form/Route: INJECTABLE;INJECTION
Application: A065482 | Product #001
Applicant: AUROBINDO PHARMA LTD
Approved: May 28, 2010 | RLD: No | RS: No | Type: DISCN